FAERS Safety Report 9395764 (Version 1)
Quarter: 2013Q3

REPORT INFORMATION
  Report Type: Spontaneous
  Country: None (occurrence: US)
  Receive Date: 20130711
  Receipt Date: 20130711
  Transmission Date: 20140515
  Serious: No
  Sender: FDA-Public Use
  Company Number: US-COVIDIEN/TYCO HEALTHCARE/MALLINCKRODT-T201203691

PATIENT
  Sex: 0

DRUGS (2)
  1. OXYCODONE/ACETAMINOPHEN [Suspect]
     Indication: PRODUCT USED FOR UNKNOWN INDICATION
     Dosage: 5/325 MG, UNK
     Dates: start: 201208
  2. CYMBALTA [Concomitant]

REACTIONS (6)
  - Migraine [Unknown]
  - Back pain [Unknown]
  - Aphthous stomatitis [Unknown]
  - Hypertrophy of tongue papillae [Unknown]
  - Oral fungal infection [Unknown]
  - Headache [Unknown]
